FAERS Safety Report 15833964 (Version 2)
Quarter: 2019Q1

REPORT INFORMATION
  Report Type: Spontaneous
  Country: GB (occurrence: GB)
  Receive Date: 20190116
  Receipt Date: 20190304
  Transmission Date: 20190417
  Serious: Yes (Other)
  Sender: FDA-Public Use
  Company Number: GB-MYLANLABS-2019M1003345

PATIENT
  Age: 21 Year
  Sex: Female

DRUGS (6)
  1. COLOMYCIN                          /00013203/ [Interacting]
     Active Substance: COLISTIN SULFATE
     Dosage: 6 DOSAGE FORM, QD
     Route: 042
     Dates: start: 200311
  2. TOBRAMYCIN. [Interacting]
     Active Substance: TOBRAMYCIN
     Dosage: 8 MILLIGRAM/KILOGRAM, QD
     Route: 042
     Dates: start: 200311
  3. COLOMYCIN                          /00013203/ [Interacting]
     Active Substance: COLISTIN SULFATE
     Indication: PSEUDOMONAS INFECTION
     Dosage: 2 MEGAUNITS, TID
     Route: 042
     Dates: start: 20030101
  4. IBUPROFEN. [Interacting]
     Active Substance: IBUPROFEN
     Indication: ARTHROPATHY
     Dosage: UNK
     Route: 065
     Dates: start: 20030101, end: 20030101
  5. AZITHROMYCIN ANHYDROUS. [Suspect]
     Active Substance: AZITHROMYCIN ANHYDROUS
     Indication: ANTIINFLAMMATORY THERAPY
     Dosage: UNK
     Route: 065
     Dates: start: 2003, end: 20030101
  6. TOBRAMYCIN. [Interacting]
     Active Substance: TOBRAMYCIN
     Indication: PSEUDOMONAS INFECTION
     Dosage: 120 MILLIGRAM, TID
     Route: 042
     Dates: start: 20031101

REACTIONS (10)
  - Drug interaction [Recovered/Resolved]
  - Arthropathy [Recovered/Resolved]
  - Vomiting [Recovered/Resolved]
  - Blood creatinine increased [Recovered/Resolved]
  - Influenza like illness [Recovered/Resolved]
  - Dyspepsia [Recovered/Resolved]
  - Weight decreased [Recovered/Resolved]
  - Hypophagia [Recovered/Resolved]
  - Blood urea increased [Recovered/Resolved]
  - Acute kidney injury [Recovered/Resolved]
